FAERS Safety Report 11342026 (Version 1)
Quarter: 2015Q3

REPORT INFORMATION
  Report Type: Report from Study
  Country: SE (occurrence: SE)
  Receive Date: 20150805
  Receipt Date: 20150805
  Transmission Date: 20151125
  Serious: Yes (Congenital Anomaly)
  Sender: FDA-Public Use
  Company Number: SE-UCBSA-2015024361

PATIENT
  Sex: Male

DRUGS (1)
  1. LEVETIRACETAM. [Suspect]
     Active Substance: LEVETIRACETAM
     Indication: EPILEPSY
     Dosage: DOSE: 1000 (UNIT UNSPECIFIED)
     Route: 064
     Dates: end: 201305

REACTIONS (2)
  - Foetal exposure during pregnancy [Unknown]
  - Hypospadias [Unknown]
